FAERS Safety Report 17487279 (Version 1)
Quarter: 2020Q1

REPORT INFORMATION
  Report Type: Spontaneous
  Country: US (occurrence: US)
  Receive Date: 20200219
  Receipt Date: 20200219
  Transmission Date: 20200409
  Serious: Yes (Hospitalization)
  Sender: FDA-Public Use
  Company Number: 2020-US-001036

PATIENT
  Age: 80 Year
  Sex: Female
  Weight: 62.6 kg

DRUGS (5)
  1. ORIGINAL FORMULA HEMP EXTRACT OIL MINT CHOCOLATE FLAVOR CHARLOTTES WEB [CBD] [Suspect]
     Active Substance: CANNABIDIOL\HERBALS
     Indication: ANALGESIC THERAPY
     Route: 048
     Dates: start: 201601, end: 20200110
  2. UNSPECIFIED STATIN MEDICATION [Concomitant]
  3. GABAPENTIN. [Concomitant]
     Active Substance: GABAPENTIN
  4. THC [.DELTA.8-TETRAHYDROCANNABINOL] [Suspect]
     Active Substance: .DELTA.8-TETRAHYDROCANNABINOL
  5. LOSARTAN. [Concomitant]
     Active Substance: LOSARTAN

REACTIONS (7)
  - Confusional state [None]
  - Vision blurred [None]
  - Drug screen positive [None]
  - Dysarthria [None]
  - Transient ischaemic attack [None]
  - Dizziness [None]
  - Drug interaction [None]

NARRATIVE: CASE EVENT DATE: 201910
